FAERS Safety Report 17036165 (Version 1)
Quarter: 2019Q4

REPORT INFORMATION
  Report Type: Spontaneous
  Country: US (occurrence: US)
  Receive Date: 20191114
  Receipt Date: 20191114
  Transmission Date: 20200122
  Serious: Yes (Other)
  Sender: FDA-Public Use
  Company Number: None

PATIENT
  Age: 83 Year
  Sex: Female
  Weight: 45 kg

DRUGS (14)
  1. DULOXETINE. [Concomitant]
     Active Substance: DULOXETINE
  2. QUETIAPINE. [Concomitant]
     Active Substance: QUETIAPINE
  3. PROCHLORPERAZINE. [Concomitant]
     Active Substance: PROCHLORPERAZINE
  4. GENTAMICIN. [Suspect]
     Active Substance: GENTAMICIN
     Indication: URINARY TRACT INFECTION
     Route: 041
     Dates: start: 20191107, end: 20191109
  5. LORAZEPAM. [Concomitant]
     Active Substance: LORAZEPAM
  6. ONDANSETRON [Concomitant]
     Active Substance: ONDANSETRON
  7. SENNAS [Concomitant]
  8. ASPIRIN. [Concomitant]
     Active Substance: ASPIRIN
  9. MORPHINE [Concomitant]
     Active Substance: MORPHINE
  10. HALOPERIDOL. [Concomitant]
     Active Substance: HALOPERIDOL
  11. FAMOTIDINE. [Concomitant]
     Active Substance: FAMOTIDINE
  12. PREDNISONE. [Concomitant]
     Active Substance: PREDNISONE
  13. CETIRIZINE [Concomitant]
     Active Substance: CETIRIZINE HYDROCHLORIDE
  14. AMIODARONE [Concomitant]
     Active Substance: AMIODARONE

REACTIONS (1)
  - Angioedema [None]

NARRATIVE: CASE EVENT DATE: 20191109
